FAERS Safety Report 10648756 (Version 1)
Quarter: 2014Q4

REPORT INFORMATION
  Report Type: Spontaneous
  Country: US (occurrence: US)
  Receive Date: 20141212
  Receipt Date: 20141212
  Transmission Date: 20150529
  Serious: No
  Sender: FDA-Public Use
  Company Number: US-PFIZER INC-2014338838

PATIENT
  Sex: Female

DRUGS (1)
  1. ADVIL [Suspect]
     Active Substance: IBUPROFEN
     Dosage: 2 TABLETS, ONCE A DAY AT NIGHT
     Dates: start: 20141207

REACTIONS (7)
  - Ocular hyperaemia [Unknown]
  - Urticaria [Unknown]
  - Erythema [Unknown]
  - Rash [Unknown]
  - Hypersensitivity [Unknown]
  - Eye swelling [Unknown]
  - Swelling face [Unknown]

NARRATIVE: CASE EVENT DATE: 201412
